FAERS Safety Report 4454726-4 (Version None)
Quarter: 2004Q3

REPORT INFORMATION
  Report Type: 
  Country: None (occurrence: None)
  Receive Date: 20040920
  Receipt Date: 20040920
  Transmission Date: 20050211
  Serious: Yes (Hospitalization)
  Sender: FDA-Public Use
  Company Number: None

PATIENT
  Age: 78 Year
  Sex: Male
  Weight: 46 kg

DRUGS (2)
  1. CEFAZOLIN [Suspect]
     Indication: URINARY TRACT INFECTION
     Dosage: 1 GM Q 24 HR INTRAVENOUS
     Route: 042
     Dates: start: 20040712, end: 20040720
  2. LEVOFLOXACIN [Concomitant]

REACTIONS (3)
  - HYPERKALAEMIA [None]
  - MENTAL STATUS CHANGES [None]
  - RENAL FAILURE CHRONIC [None]
